FAERS Safety Report 25063745 (Version 1)
Quarter: 2025Q1

REPORT INFORMATION
  Report Type: Spontaneous
  Country: US (occurrence: US)
  Receive Date: 20250311
  Receipt Date: 20250311
  Transmission Date: 20250409
  Serious: Yes (Hospitalization)
  Sender: BAYER HEALTHCARE PHARMACEUTICALS INC.
  Company Number: US-BAYER-2025A030607

PATIENT
  Age: 20 Year
  Sex: Female

DRUGS (1)
  1. MIRENA [Suspect]
     Active Substance: LEVONORGESTREL
     Dosage: 20?G/DAY
     Route: 015
     Dates: start: 2018

REACTIONS (3)
  - Ectopic pregnancy with contraceptive device [Recovered/Resolved with Sequelae]
  - Fallopian tube disorder [Recovered/Resolved with Sequelae]
  - Drug ineffective [None]

NARRATIVE: CASE EVENT DATE: 20240101
